FAERS Safety Report 12940589 (Version 3)
Quarter: 2024Q3

REPORT INFORMATION
  Report Type: Spontaneous
  Country: US (occurrence: US)
  Receive Date: 20161115
  Receipt Date: 20240730
  Transmission Date: 20241017
  Serious: No
  Sender: JOHNSON AND JOHNSON
  Company Number: US-JNJFOC-20161103068

PATIENT
  Sex: Male

DRUGS (6)
  1. RISPERDAL [Suspect]
     Active Substance: RISPERIDONE
     Indication: Behaviour disorder
     Route: 048
     Dates: start: 2009, end: 2009
  2. RISPERDAL [Suspect]
     Active Substance: RISPERIDONE
     Indication: Affective disorder
     Dosage: RISPERIDONE 1 MG AT NIGHTTIME AND 0.5 MG TWICE A DAY
     Route: 048
  3. RISPERDAL [Suspect]
     Active Substance: RISPERIDONE
     Indication: Sleep disorder
  4. RISPERDAL [Suspect]
     Active Substance: RISPERIDONE
     Indication: Aggression
  5. RISPERDAL [Suspect]
     Active Substance: RISPERIDONE
     Indication: Impulsive behaviour
  6. RISPERDAL [Suspect]
     Active Substance: RISPERIDONE
     Indication: Affect lability

REACTIONS (4)
  - Gynaecomastia [Unknown]
  - Obesity [Unknown]
  - Increased appetite [Unknown]
  - Off label use [Unknown]

NARRATIVE: CASE EVENT DATE: 20090101
